FAERS Safety Report 21586447 (Version 1)
Quarter: 2022Q4

REPORT INFORMATION
  Report Type: Spontaneous
  Country: US (occurrence: US)
  Receive Date: 20221112
  Receipt Date: 20221112
  Transmission Date: 20230112
  Serious: No
  Sender: FDA-Public Use
  Company Number: US-UNITED THERAPEUTICS-UNT-2022-027273

PATIENT
  Age: 77 Year
  Sex: Female

DRUGS (2)
  1. TYVASO [Suspect]
     Active Substance: TREPROSTINIL
     Indication: Pulmonary arterial hypertension
     Dosage: UNK
     Dates: start: 20220602
  2. TYVASO [Suspect]
     Active Substance: TREPROSTINIL
     Dosage: 36 ?G, QID
     Dates: start: 2022

REACTIONS (3)
  - Fall [Recovered/Resolved with Sequelae]
  - Head injury [Recovering/Resolving]
  - Limb injury [Recovering/Resolving]

NARRATIVE: CASE EVENT DATE: 20221106
